FAERS Safety Report 20303784 (Version 1)
Quarter: 2022Q1

REPORT INFORMATION
  Report Type: Spontaneous
  Country: PL (occurrence: None)
  Receive Date: 20220106
  Receipt Date: 20220106
  Transmission Date: 20220424
  Serious: Yes (Death)
  Sender: FDA-Public Use
  Company Number: None

PATIENT
  Age: 52 Year
  Sex: Male

DRUGS (5)
  1. TOCILIZUMAB [Suspect]
     Active Substance: TOCILIZUMAB
     Indication: SARS-CoV-2 test positive
     Dosage: DRUG WAS GIVEN ONCE
     Route: 042
     Dates: start: 20211103, end: 20211103
  2. ENOXAPARIN SODIUM [Concomitant]
     Active Substance: ENOXAPARIN SODIUM
     Dosage: 0,04 MG 2 X
     Route: 058
     Dates: start: 20211101, end: 20211116
  3. DEXAMETHASONE [Concomitant]
     Active Substance: DEXAMETHASONE
     Dosage: 8 MG 1 X
     Route: 042
     Dates: start: 20211103
  4. CEFTRIAXONE [Concomitant]
     Active Substance: CEFTRIAXONE
     Dosage: 2G 1X
     Route: 042
     Dates: start: 20211101
  5. PANTOPRAZOLE [Concomitant]
     Active Substance: PANTOPRAZOLE
     Dosage: 40 MG 1X
     Route: 042
     Dates: start: 20211101, end: 20211116

REACTIONS (3)
  - COVID-19 [Fatal]
  - Acute respiratory distress syndrome [Fatal]
  - Hypofibrinogenaemia [Fatal]

NARRATIVE: CASE EVENT DATE: 20211106
